FAERS Safety Report 8219596-7 (Version None)
Quarter: 2012Q1

REPORT INFORMATION
  Report Type: 
  Country: None (occurrence: None)
  Receive Date: 20120319
  Receipt Date: 20120312
  Transmission Date: 20120608
  Serious: Yes (Hospitalization)
  Sender: FDA-Public Use
  Company Number: DE-PFIZER INC-2012042652

PATIENT
  Age: 67 Year
  Sex: Female

DRUGS (1)
  1. TORISEL [Suspect]
     Indication: MANTLE CELL LYMPHOMA
     Dosage: UNK
     Route: 042
     Dates: start: 20111001, end: 20120101

REACTIONS (11)
  - GENERAL PHYSICAL HEALTH DETERIORATION [None]
  - ALOPECIA [None]
  - DIARRHOEA [None]
  - AGEUSIA [None]
  - ONYCHOCLASIS [None]
  - UPPER RESPIRATORY TRACT INFECTION [None]
  - DERMATITIS ALLERGIC [None]
  - ORAL DISORDER [None]
  - NAUSEA [None]
  - PRURITUS [None]
  - DECREASED APPETITE [None]
